FAERS Safety Report 10081616 (Version 2)
Quarter: 2014Q2

REPORT INFORMATION
  Report Type: Spontaneous
  Country: RU (occurrence: RU)
  Receive Date: 20140416
  Receipt Date: 20140429
  Transmission Date: 20141212
  Serious: No
  Sender: FDA-Public Use
  Company Number: RU-BIOMARINAP-RU-2014-102988

PATIENT
  Sex: Female

DRUGS (1)
  1. NAGLAZYME [Suspect]
     Indication: MUCOPOLYSACCHARIDOSIS VI
     Dosage: UNK, QW
     Route: 041

REACTIONS (3)
  - Ovarian cyst [Unknown]
  - Abdominal neoplasm [Unknown]
  - Abdominal pain [Unknown]
